FAERS Safety Report 11954921 (Version 1)
Quarter: 2016Q1

REPORT INFORMATION
  Report Type: Report from Study
  Country: US (occurrence: US)
  Receive Date: 20160125
  Receipt Date: 20160125
  Transmission Date: 20160526
  Serious: No
  Sender: FDA-Public Use
  Company Number: US-ABBVIE-15K-163-1353454-00

PATIENT
  Sex: Female
  Weight: 121.22 kg

DRUGS (8)
  1. TACLONEX [Concomitant]
     Active Substance: BETAMETHASONE DIPROPIONATE\CALCIPOTRIENE\CALCIPOTRIENE HYDRATE
     Indication: PSORIASIS
  2. HUMIRA [Suspect]
     Active Substance: ADALIMUMAB
     Indication: RHEUMATOID ARTHRITIS
     Route: 065
  3. CLOBEX [Concomitant]
     Active Substance: CLOBETASOL PROPIONATE
     Indication: PSORIASIS
  4. VITAMIN D [Concomitant]
     Active Substance: CHOLECALCIFEROL
     Indication: VITAMIN SUPPLEMENTATION
  5. HUMIRA [Suspect]
     Active Substance: ADALIMUMAB
     Indication: PSORIASIS
     Route: 065
     Dates: start: 201307, end: 201310
  6. SALEX [Concomitant]
     Active Substance: SALICYLIC ACID
     Indication: PSORIASIS
  7. VECTICAL [Concomitant]
     Active Substance: CALCITRIOL
     Indication: PSORIASIS
  8. MOBIC [Concomitant]
     Active Substance: MELOXICAM
     Indication: RHEUMATOID ARTHRITIS

REACTIONS (3)
  - Paraesthesia [Not Recovered/Not Resolved]
  - Hypoaesthesia [Not Recovered/Not Resolved]
  - Drug ineffective [Recovering/Resolving]
